FAERS Safety Report 18284908 (Version 1)
Quarter: 2020Q3

REPORT INFORMATION
  Report Type: Spontaneous
  Country: US (occurrence: US)
  Receive Date: 20200918
  Receipt Date: 20200918
  Transmission Date: 20201103
  Serious: No
  Sender: FDA-Public Use
  Company Number: US-VIIV HEALTHCARE LIMITED-US2016AMR203288

PATIENT
  Age: 23 Year
  Sex: Male

DRUGS (1)
  1. TIVICAY [Suspect]
     Active Substance: DOLUTEGRAVIR SODIUM
     Indication: HIV INFECTION
     Dosage: UNK
     Dates: start: 20120301

REACTIONS (3)
  - Feeling abnormal [Recovered/Resolved]
  - Abnormal dreams [Unknown]
  - Nausea [Unknown]

NARRATIVE: CASE EVENT DATE: 20160720
